FAERS Safety Report 9450151 (Version 1)
Quarter: 2013Q3

REPORT INFORMATION
  Report Type: Spontaneous
  Country: US (occurrence: US)
  Receive Date: 20130809
  Receipt Date: 20130809
  Transmission Date: 20140515
  Serious: No
  Sender: FDA-Public Use
  Company Number: US-GLAXOSMITHKLINE-A0995632A

PATIENT
  Age: 62 Year
  Sex: Female

DRUGS (3)
  1. REQUIP XL [Suspect]
     Indication: RESTLESS LEGS SYNDROME
     Dosage: 2MG THREE TIMES PER DAY
     Route: 048
     Dates: start: 201208
  2. NEXIUM [Concomitant]
  3. EFFEXOR [Concomitant]

REACTIONS (3)
  - Restless legs syndrome [Unknown]
  - Drug administration error [Unknown]
  - Therapeutic response decreased [Unknown]
